FAERS Safety Report 14958174 (Version 1)
Quarter: 2018Q2

REPORT INFORMATION
  Report Type: Spontaneous
  Country: US (occurrence: US)
  Receive Date: 20180531
  Receipt Date: 20180531
  Transmission Date: 20180711
  Serious: Yes (Death)
  Sender: FDA-Public Use
  Company Number: US-JNJFOC-20180539547

PATIENT
  Age: 88 Year

DRUGS (1)
  1. XARELTO [Suspect]
     Active Substance: RIVAROXABAN
     Indication: PRODUCT USED FOR UNKNOWN INDICATION
     Route: 048
     Dates: start: 20140728, end: 20160305

REACTIONS (3)
  - Respiratory failure [Fatal]
  - Haemorrhagic stroke [Fatal]
  - Anaemia [Unknown]

NARRATIVE: CASE EVENT DATE: 20160305
